FAERS Safety Report 4916656-0 (Version None)
Quarter: 2006Q1

REPORT INFORMATION
  Report Type: 
  Country: None (occurrence: None)
  Receive Date: 20060220
  Receipt Date: 20060123
  Transmission Date: 20060701
  Serious: Yes (Hospitalization)
  Sender: FDA-Public Use
  Company Number: 2006AP00392

PATIENT
  Age: 1 Year
  Sex: Male
  Weight: 12 kg

DRUGS (8)
  1. MEROPEN [Suspect]
     Indication: ABSCESS NECK
     Route: 041
     Dates: start: 20051124, end: 20051128
  2. SOLITAR T3 [Concomitant]
     Indication: FLUID REPLACEMENT
     Route: 041
     Dates: start: 20051124, end: 20051128
  3. C-PARA [Concomitant]
     Indication: VITAMIN SUPPLEMENTATION
     Route: 041
     Dates: start: 20051124, end: 20051128
  4. MUCODYNE SYRUP [Concomitant]
     Indication: PRODUCTIVE COUGH
     Route: 048
     Dates: start: 20051124, end: 20051128
  5. SANACTASE R [Concomitant]
     Indication: DYSPEPSIA
     Route: 048
     Dates: start: 20051124, end: 20051128
  6. BIOFERMIN R [Concomitant]
     Indication: GASTROINTESTINAL DISORDER
     Route: 048
     Dates: start: 20051124, end: 20051128
  7. MEIACT [Concomitant]
     Indication: ABSCESS NECK
     Route: 048
     Dates: start: 20051116, end: 20051120
  8. ROCEPHIN [Concomitant]
     Route: 041
     Dates: start: 20051123

REACTIONS (5)
  - BALANCE DISORDER [None]
  - DEPRESSED LEVEL OF CONSCIOUSNESS [None]
  - DYSURIA [None]
  - MOOD ALTERED [None]
  - URINARY RETENTION [None]
